FAERS Safety Report 6985778-5 (Version None)
Quarter: 2010Q3

REPORT INFORMATION
  Report Type: 
  Country: None (occurrence: None)
  Receive Date: 20100915
  Receipt Date: 20091218
  Transmission Date: 20110219
  Serious: No
  Sender: FDA-Public Use
  Company Number: US-BAYER-200943936NA

PATIENT
  Age: 22 Year
  Sex: Female
  Weight: 98 kg

DRUGS (1)
  1. MIRENA [Suspect]
     Indication: CONTRACEPTION
     Route: 015
     Dates: start: 20080718

REACTIONS (7)
  - ABDOMINAL DISCOMFORT [None]
  - AMENORRHOEA [None]
  - MIGRAINE [None]
  - OVERWEIGHT [None]
  - PAIN [None]
  - PREGNANCY WITH CONTRACEPTIVE DEVICE [None]
  - SENSATION OF PRESSURE [None]
